FAERS Safety Report 9285394 (Version 1)
Quarter: 2013Q2

REPORT INFORMATION
  Report Type: Spontaneous
  Country: US (occurrence: US)
  Receive Date: 20130513
  Receipt Date: 20130513
  Transmission Date: 20140414
  Serious: No
  Sender: FDA-Public Use
  Company Number: US-PFIZER INC-2013144183

PATIENT
  Sex: Female

DRUGS (3)
  1. DOXYCYCLINE HYCLATE [Suspect]
     Dosage: UNK
     Dates: start: 2012
  2. LEVAQUIN [Suspect]
     Dosage: UNK
  3. BIAXIN [Suspect]
     Dosage: UNK

REACTIONS (2)
  - Abdominal discomfort [Unknown]
  - Bronchitis [Unknown]
